FAERS Safety Report 15617308 (Version 1)
Quarter: 2018Q4

REPORT INFORMATION
  Report Type: Spontaneous
  Country: US (occurrence: US)
  Receive Date: 20181112
  Receipt Date: 20181112
  Transmission Date: 20190205
  Serious: Yes (Life-Threatening)
  Sender: FDA-Public Use
  Company Number: None

PATIENT
  Age: 61 Year
  Sex: Female
  Weight: 85.5 kg

DRUGS (2)
  1. CLARITIN-D 24 HOUR [Suspect]
     Active Substance: LORATADINE\PSEUDOEPHEDRINE SULFATE
     Indication: SINUS CONGESTION
     Dosage: ?          QUANTITY:15 DF DOSAGE FORM;?
     Route: 048
     Dates: start: 20181111, end: 20181112
  2. AMOXICILLIN. [Concomitant]
     Active Substance: AMOXICILLIN

REACTIONS (5)
  - Muscle spasms [None]
  - Blood pressure increased [None]
  - Tremor [None]
  - Nervousness [None]
  - Palpitations [None]

NARRATIVE: CASE EVENT DATE: 20181111
